FAERS Safety Report 7527914-8 (Version None)
Quarter: 2011Q2

REPORT INFORMATION
  Report Type: 
  Country: None (occurrence: None)
  Receive Date: 20110531
  Receipt Date: 20110519
  Transmission Date: 20111010
  Serious: Yes (Other)
  Sender: FDA-Public Use
  Company Number: DKLU1070784

PATIENT
  Age: 12 Year
  Sex: Male

DRUGS (2)
  1. ORIFIRIL [Concomitant]
  2. SABRIL [Suspect]
     Indication: CONVULSION
     Dates: start: 19950901, end: 20070101

REACTIONS (1)
  - OPTIC ATROPHY [None]
